FAERS Safety Report 9563156 (Version 2)
Quarter: 2013Q3

REPORT INFORMATION
  Report Type: Spontaneous
  Country: US (occurrence: US)
  Receive Date: 20130927
  Receipt Date: 20130927
  Transmission Date: 20140515
  Serious: Yes (Hospitalization)
  Sender: FDA-Public Use
  Company Number: US-BRISTOL-MYERS SQUIBB COMPANY-17474651

PATIENT
  Sex: Male

DRUGS (1)
  1. ONGLYZA TABS 5 MG [Suspect]
     Dosage: 5 MG TABLETS IN HALF AND ONLY TAKES HALF AT A TIME

REACTIONS (2)
  - Hospitalisation [Unknown]
  - Medication error [Unknown]
